FAERS Safety Report 14748532 (Version 1)
Quarter: 2018Q2

REPORT INFORMATION
  Report Type: Spontaneous
  Country: US (occurrence: US)
  Receive Date: 20180411
  Receipt Date: 20180411
  Transmission Date: 20180711
  Serious: No
  Sender: FDA-Public Use
  Company Number: US-AMGEN-USASP2017162885

PATIENT
  Age: 73 Year
  Sex: Female

DRUGS (5)
  1. PROLIA [Suspect]
     Active Substance: DENOSUMAB
     Indication: OSTEOPOROSIS POSTMENOPAUSAL
     Dosage: 60 MG, UNK
     Route: 065
     Dates: start: 2017, end: 2017
  2. RALOXIFENE. [Concomitant]
     Active Substance: RALOXIFENE
     Dosage: UNK
     Dates: start: 2017
  3. ZETIA [Concomitant]
     Active Substance: EZETIMIBE
     Indication: BLOOD CHOLESTEROL INCREASED
  4. NEXIUM [Concomitant]
     Active Substance: ESOMEPRAZOLE MAGNESIUM
     Indication: GASTROOESOPHAGEAL REFLUX DISEASE
  5. EVISTA [Concomitant]
     Active Substance: RALOXIFENE HYDROCHLORIDE

REACTIONS (5)
  - Swelling [Recovering/Resolving]
  - Muscle spasms [Recovering/Resolving]
  - Drug ineffective [Unknown]
  - Mobility decreased [Recovering/Resolving]
  - Back pain [Unknown]

NARRATIVE: CASE EVENT DATE: 2017
